FAERS Safety Report 5619240-9 (Version None)
Quarter: 2008Q1

REPORT INFORMATION
  Report Type: 
  Country: None (occurrence: None)
  Receive Date: 20080205
  Receipt Date: 20080124
  Transmission Date: 20080703
  Serious: Yes (Hospitalization)
  Sender: FDA-Public Use
  Company Number: ERP08000007

PATIENT
  Age: 79 Year
  Sex: Male

DRUGS (7)
  1. V [Suspect]
     Indication: PROSTATE CANCER
     Dosage: 30 MG, DAILY, ORAL
     Route: 048
     Dates: start: 20070921
  2. DOCETAXEL [Suspect]
     Indication: PROSTATE CANCER
     Dosage: 140 MG, EVERY 3WK, INJECTION NOS
     Dates: start: 20070921
  3. PREDNISONE [Concomitant]
  4. VERAPAMIL [Concomitant]
  5. HCT (HYDROCHLOROTHIAZIDE) [Concomitant]
  6. OMEPRAZOLE [Concomitant]
  7. LUCRIN (LEUPRORELIN ACETATE) [Concomitant]

REACTIONS (3)
  - C-REACTIVE PROTEIN INCREASED [None]
  - FEBRILE NEUTROPENIA [None]
  - WHITE BLOOD CELL COUNT DECREASED [None]
